FAERS Safety Report 10735550 (Version 1)
Quarter: 2015Q1

REPORT INFORMATION
  Report Type: Spontaneous
  Country: US (occurrence: US)
  Receive Date: 20150126
  Receipt Date: 20150126
  Transmission Date: 20150721
  Serious: Yes (Hospitalization)
  Sender: FDA-Public Use
  Company Number: US-JNJFOC-20150111378

PATIENT
  Age: 70 Year
  Sex: Female

DRUGS (2)
  1. TYLENOL EXTRA STRENGTH [Suspect]
     Active Substance: ACETAMINOPHEN
     Indication: PRODUCT USED FOR UNKNOWN INDICATION
     Dosage: 1-3 EXTRA STRENGTH TYLENOL PER DAY, 500 MG, MAX. 1500 TOTAL DAILY DOSE
     Route: 048
     Dates: end: 20091224
  2. VICODIN [Suspect]
     Active Substance: ACETAMINOPHEN\HYDROCODONE BITARTRATE
     Indication: PRODUCT USED FOR UNKNOWN INDICATION
     Route: 065

REACTIONS (5)
  - Abdominal pain [Recovering/Resolving]
  - Nausea [Unknown]
  - Transaminases increased [Recovering/Resolving]
  - Drug administration error [Unknown]
  - Vomiting [Unknown]

NARRATIVE: CASE EVENT DATE: 20091227
